FAERS Safety Report 13639735 (Version 1)
Quarter: 2017Q2

REPORT INFORMATION
  Report Type: Spontaneous
  Country: US (occurrence: US)
  Receive Date: 20170609
  Receipt Date: 20170609
  Transmission Date: 20170830
  Serious: No
  Sender: FDA-Public Use
  Company Number: US-ROCHE-786594

PATIENT
  Sex: Female
  Weight: 59 kg

DRUGS (2)
  1. KLONOPIN [Suspect]
     Active Substance: CLONAZEPAM
     Indication: PARAESTHESIA
     Dosage: EVERY DAY SINCE 14 YEARS.
     Route: 048
  2. KLONOPIN [Suspect]
     Active Substance: CLONAZEPAM
     Dosage: EVERY DAY SINCE 14 YEARS.
     Route: 048

REACTIONS (1)
  - Complex regional pain syndrome [Unknown]
